FAERS Safety Report 4528555-7 (Version None)
Quarter: 2004Q4

REPORT INFORMATION
  Report Type: 
  Country: None (occurrence: None)
  Receive Date: 20041216
  Receipt Date: 20041124
  Transmission Date: 20050328
  Serious: Yes (Other)
  Sender: FDA-Public Use
  Company Number: CA-ABBOTT-04P-028-0282024-00

PATIENT
  Age: 51 Year
  Sex: Female

DRUGS (10)
  1. SEVOFLURANE [Suspect]
     Indication: INDUCTION OF ANAESTHESIA
     Route: 055
  2. SEVOFLURANE [Suspect]
     Route: 055
  3. SEVOFLURANE [Suspect]
     Route: 055
  4. SUFENTANIL [Interacting]
     Indication: ANAESTHESIA
     Route: 042
  5. NITROUS OXIDE [Concomitant]
     Indication: INDUCTION OF ANAESTHESIA
     Dosage: 3 LITERS PER MINUTE
     Route: 055
  6. OXYGEN [Concomitant]
     Indication: INDUCTION OF ANAESTHESIA
     Dosage: 3 LITERS PER MINUTE
     Route: 055
  7. NAPROXEN [Concomitant]
     Indication: RHEUMATOID ARTHRITIS
     Dosage: NOT REPORTED
     Route: 065
  8. HORMONE REPLACEMENT THERAPY [Concomitant]
     Indication: HORMONE REPLACEMENT THERAPY
     Dosage: NOT REPORTED
     Route: 065
  9. TRAZODONE HCL [Concomitant]
     Indication: DRUG USE FOR UNKNOWN INDICATION
     Route: 065
  10. CITALOPRAM [Concomitant]
     Indication: DRUG USE FOR UNKNOWN INDICATION
     Route: 065

REACTIONS (4)
  - BRADYCARDIA [None]
  - DRUG INTERACTION [None]
  - HYPOTENSION [None]
  - PROCEDURAL COMPLICATION [None]
